FAERS Safety Report 24843635 (Version 2)
Quarter: 2025Q1

REPORT INFORMATION
  Report Type: Spontaneous
  Country: US (occurrence: None)
  Receive Date: 20250115
  Receipt Date: 20250124
  Transmission Date: 20250408
  Serious: No
  Sender: ENCUBE ETHICALS
  Company Number: US-Encube-001567

PATIENT
  Age: 39 Year
  Sex: Male

DRUGS (2)
  1. TESTOSTERONE [Suspect]
     Active Substance: TESTOSTERONE
     Indication: Product used for unknown indication
     Dosage: IN 5G OF GEL
     Dates: start: 202412
  2. LEVOTHYROXINE [Concomitant]
     Active Substance: LEVOTHYROXINE
     Indication: Hypothyroidism

REACTIONS (3)
  - Feeling abnormal [Unknown]
  - Product physical consistency issue [Unknown]
  - Palpitations [Unknown]

NARRATIVE: CASE EVENT DATE: 20241201
